FAERS Safety Report 13878821 (Version 1)
Quarter: 2017Q3

REPORT INFORMATION
  Report Type: Spontaneous
  Country: US (occurrence: US)
  Receive Date: 20170817
  Receipt Date: 20170817
  Transmission Date: 20171127
  Serious: Yes (Other)
  Sender: FDA-Public Use
  Company Number: US-PFIZER INC-2017355091

PATIENT
  Sex: Female

DRUGS (5)
  1. FENTANYL. [Suspect]
     Active Substance: FENTANYL
     Dosage: UNK
  2. METOCLOPRAMIDE HCL [Suspect]
     Active Substance: METOCLOPRAMIDE HYDROCHLORIDE
     Dosage: 10 MG, UNK
  3. NORVASC [Suspect]
     Active Substance: AMLODIPINE BESYLATE
     Dosage: 10 MG, UNK
  4. METHOTREXATE SODIUM. [Suspect]
     Active Substance: METHOTREXATE SODIUM
     Dosage: 20 MG, WEEKLY (2.5MG 8TABS WEEKLY)
  5. POTASSIUM CHLORIDE. [Suspect]
     Active Substance: POTASSIUM CHLORIDE
     Dosage: 10 MEQ, UNK

REACTIONS (17)
  - Back pain [Unknown]
  - Dry eye [Unknown]
  - Arthralgia [Unknown]
  - Glomerular filtration rate decreased [Unknown]
  - Vitamin D decreased [Unknown]
  - Crepitations [Unknown]
  - Synovitis [Unknown]
  - Musculoskeletal stiffness [Unknown]
  - Pain [Unknown]
  - Blood creatinine increased [Unknown]
  - Fatigue [Unknown]
  - Blood sodium increased [Unknown]
  - Product intolerance [Unknown]
  - Blood pressure increased [Unknown]
  - Sjogren^s syndrome [Unknown]
  - Joint swelling [Unknown]
  - Foot deformity [Unknown]
